FAERS Safety Report 23335038 (Version 1)
Quarter: 2023Q4

REPORT INFORMATION
  Report Type: Spontaneous
  Country: JP (occurrence: JP)
  Receive Date: 20231225
  Receipt Date: 20231225
  Transmission Date: 20240110
  Serious: Yes (Life-Threatening, Hospitalization, Other)
  Sender: FDA-Public Use
  Company Number: JP-GENMAB-2023-02440

PATIENT
  Age: 8 Decade
  Sex: Female

DRUGS (2)
  1. EPKINLY [Suspect]
     Active Substance: EPCORITAMAB-BYSP
     Indication: Diffuse large B-cell lymphoma
     Dosage: 0.16 MILLIGRAM
     Route: 058
     Dates: start: 20231206, end: 20231206
  2. EPKINLY [Suspect]
     Active Substance: EPCORITAMAB-BYSP
     Dosage: 0.8 MILLIGRAM
     Route: 058
     Dates: start: 20231213, end: 20231213

REACTIONS (3)
  - Atrial flutter [Not Recovered/Not Resolved]
  - Pyrexia [Not Recovered/Not Resolved]
  - Cytokine release syndrome [Not Recovered/Not Resolved]

NARRATIVE: CASE EVENT DATE: 20231214
